FAERS Safety Report 24585729 (Version 1)
Quarter: 2024Q4

REPORT INFORMATION
  Report Type: Spontaneous
  Country: FR (occurrence: FR)
  Receive Date: 20241106
  Receipt Date: 20241106
  Transmission Date: 20250115
  Serious: Yes (Hospitalization)
  Sender: MYLAN
  Company Number: None

PATIENT
  Age: 38 Year
  Sex: Male
  Weight: 62 kg

DRUGS (4)
  1. PREDNISONE [Interacting]
     Active Substance: PREDNISONE
     Indication: Renal transplant
     Dosage: 10 MILLIGRAM, QD
     Route: 048
     Dates: start: 20130901
  2. TACROLIMUS [Interacting]
     Active Substance: TACROLIMUS
     Indication: Renal transplant
     Dosage: 8 MILLIGRAM, QD
     Route: 048
     Dates: start: 20130901
  3. CELLCEPT [Interacting]
     Active Substance: MYCOPHENOLATE MOFETIL
     Indication: Renal transplant
     Dosage: 2 DOSAGE FORM, QD
     Route: 048
     Dates: start: 20130901, end: 20240808
  4. COLCHICINE [Interacting]
     Active Substance: COLCHICINE
     Indication: Brucellosis
     Dosage: 1 MILLIGRAM, QD
     Route: 048
     Dates: start: 20110103

REACTIONS (2)
  - Parvovirus B19 infection [Recovered/Resolved]
  - Drug interaction [Recovered/Resolved]

NARRATIVE: CASE EVENT DATE: 20240731
